FAERS Safety Report 21121380 (Version 1)
Quarter: 2022Q3

REPORT INFORMATION
  Report Type: Spontaneous
  Country: US (occurrence: US)
  Receive Date: 20220722
  Receipt Date: 20220722
  Transmission Date: 20221026
  Serious: No
  Sender: FDA-Public Use
  Company Number: US-PFIZER INC-202200993489

PATIENT
  Age: 7 Year
  Sex: Female

DRUGS (1)
  1. BOSULIF [Suspect]
     Active Substance: BOSUTINIB MONOHYDRATE
     Dosage: TAKE 2 TABLETS ONCE A DAY
     Route: 048
     Dates: start: 20220415

REACTIONS (5)
  - Rash papular [Unknown]
  - Dry skin [Unknown]
  - Skin exfoliation [Unknown]
  - Diarrhoea [Unknown]
  - Decreased appetite [Unknown]
